FAERS Safety Report 23247128 (Version 3)
Quarter: 2024Q4

REPORT INFORMATION
  Report Type: Spontaneous
  Country: US (occurrence: US)
  Receive Date: 20231130
  Receipt Date: 20241213
  Transmission Date: 20250114
  Serious: No
  Sender: NOVO NORDISK
  Company Number: US-NOVOPROD-1087527

PATIENT
  Sex: Female

DRUGS (4)
  1. TRESIBA [Suspect]
     Active Substance: INSULIN DEGLUDEC
     Indication: Type 2 diabetes mellitus
     Dosage: 12 IU
     Route: 058
     Dates: start: 202304, end: 202306
  2. TRESIBA [Suspect]
     Active Substance: INSULIN DEGLUDEC
     Indication: Blood glucose increased
  3. LEVEMIR [Suspect]
     Active Substance: INSULIN DETEMIR
     Indication: Product used for unknown indication
     Dosage: UNK
     Route: 058
  4. TRULICITY [Suspect]
     Active Substance: DULAGLUTIDE
     Indication: Product used for unknown indication
     Dosage: UNK

REACTIONS (7)
  - Nervousness [Recovered/Resolved]
  - Palpitations [Recovered/Resolved]
  - Illness [Unknown]
  - Abdominal discomfort [Recovered/Resolved]
  - Diabetes mellitus inadequate control [Unknown]
  - Drug ineffective [Unknown]
  - Product label confusion [Unknown]
